FAERS Safety Report 7893627-6 (Version None)
Quarter: 2011Q4

REPORT INFORMATION
  Report Type: 
  Country: None (occurrence: None)
  Receive Date: 20111104
  Receipt Date: 20111021
  Transmission Date: 20120403
  Serious: Yes (Hospitalization)
  Sender: FDA-Public Use
  Company Number: NL-GLAXOSMITHKLINE-B0747393D

PATIENT
  Sex: Male
  Weight: 79.7 kg

DRUGS (2)
  1. PAZOPANIB [Suspect]
     Indication: NEOPLASM
     Dosage: 200MG PER DAY
     Route: 048
     Dates: start: 20110823
  2. IFOSFAMIDE [Suspect]
     Indication: NEOPLASM
     Dosage: 3GM2 CYCLIC
     Route: 042
     Dates: start: 20110830

REACTIONS (2)
  - RENAL IMPAIRMENT [None]
  - NEUTROPENIA [None]
